FAERS Safety Report 17287287 (Version 2)
Quarter: 2020Q1

REPORT INFORMATION
  Report Type: Spontaneous
  Country: FR (occurrence: FR)
  Receive Date: 20200120
  Receipt Date: 20200204
  Transmission Date: 20200409
  Serious: Yes (Life-Threatening, Hospitalization)
  Sender: FDA-Public Use
  Company Number: FR-BEH-2020111537

PATIENT
  Age: 8 Month
  Sex: Male
  Weight: 10 kg

DRUGS (1)
  1. PRIVIGEN [Suspect]
     Active Substance: HUMAN IMMUNOGLOBULIN G
     Indication: IMMUNODEFICIENCY
     Dosage: 20000 MILLIGRAM PER GRAM, TOT
     Route: 042
     Dates: start: 20200104, end: 20200104

REACTIONS (4)
  - Chills [Recovered/Resolved]
  - Overdose [Unknown]
  - No adverse event [Unknown]
  - Tachycardia [Recovered/Resolved]

NARRATIVE: CASE EVENT DATE: 20200104
